FAERS Safety Report 6526098-2 (Version None)
Quarter: 2010Q1

REPORT INFORMATION
  Report Type: 
  Country: None (occurrence: None)
  Receive Date: 20100104
  Receipt Date: 20091229
  Transmission Date: 20100710
  Serious: Yes (Other)
  Sender: FDA-Public Use
  Company Number: DE-JNJCH-2009033119

PATIENT
  Sex: Female

DRUGS (1)
  1. REGAINE 2% [Suspect]
     Indication: DRUG USE FOR UNKNOWN INDICATION
     Dosage: TEXT:UNKNOWN
     Route: 061
     Dates: start: 20090301, end: 20091101

REACTIONS (3)
  - APPLICATION SITE PRURITUS [None]
  - APPLICATION SITE RASH [None]
  - OPEN WOUND [None]
